FAERS Safety Report 4348304-5 (Version None)
Quarter: 2004Q2

REPORT INFORMATION
  Report Type: 
  Country: None (occurrence: None)
  Receive Date: 20040422
  Receipt Date: 20040413
  Transmission Date: 20050107
  Serious: Yes (Hospitalization)
  Sender: FDA-Public Use
  Company Number: 2004014040

PATIENT
  Age: 46 Year
  Sex: Male

DRUGS (6)
  1. ATORVASTATIN (ATORVASTATIN) [Suspect]
     Indication: DYSLIPIDAEMIA
     Dosage: 10 MG (DAILY), ORAL
     Route: 048
     Dates: start: 20031201
  2. BROMAZEPAM (BROMAZEPAM) [Concomitant]
  3. CHLORTALIDONE (CHLORTALIDONE) [Concomitant]
  4. ENALAPRIL MALEATE [Concomitant]
  5. TIZANIDINE (TIZANIDINE) [Concomitant]
  6. CILOSTAZOL [Concomitant]

REACTIONS (3)
  - CARDIAC FAILURE [None]
  - DYSPNOEA [None]
  - HYPERHIDROSIS [None]
